FAERS Safety Report 12278011 (Version 2)
Quarter: 2016Q2

REPORT INFORMATION
  Report Type: Spontaneous
  Country: US (occurrence: US)
  Receive Date: 20160418
  Receipt Date: 20160614
  Transmission Date: 20160815
  Serious: Yes (Other)
  Sender: FDA-Public Use
  Company Number: US-BAYER-2016-068835

PATIENT
  Age: 46 Year
  Sex: Female
  Weight: 62.76 kg

DRUGS (12)
  1. COLACE [Concomitant]
     Active Substance: DOCUSATE SODIUM
     Indication: CONSTIPATION
     Dosage: 100 MG, TID, PRN
     Route: 048
     Dates: start: 20140918, end: 20150211
  2. MIRENA [Suspect]
     Active Substance: LEVONORGESTREL
     Indication: CONTRACEPTION
     Dosage: 20 MCG/24HR, CONT
     Route: 015
     Dates: start: 201505, end: 20150811
  3. VITAMIN D [ERGOCALCIFEROL] [Concomitant]
     Dosage: 50000 U, QD
     Dates: end: 20150211
  4. ACETAMINOPHEN\HYDROCODONE BITARTRATE [Concomitant]
     Active Substance: ACETAMINOPHEN\HYDROCODONE BITARTRATE
     Dosage: 1(5 MG/325 MG) DF, TID, PRN
     Route: 048
  5. MOTRIN [Concomitant]
     Active Substance: IBUPROFEN
     Indication: PAIN
     Dosage: 600 MG, TID, PRN
     Route: 048
     Dates: start: 20141009, end: 20150211
  6. MOTRIN [Concomitant]
     Active Substance: IBUPROFEN
     Indication: PAIN
     Dosage: 800 MG, TID, PRN
     Route: 048
     Dates: start: 20131119, end: 20150211
  7. STUART PRENATAL [Concomitant]
     Dosage: 1 DF, QD
     Route: 048
     Dates: start: 20140919, end: 20141019
  8. BETADINE [Concomitant]
     Active Substance: POVIDONE-IODINE
  9. MOTRIN [Concomitant]
     Active Substance: IBUPROFEN
     Indication: PYREXIA
     Dosage: 800 MG, TID, PRN
     Route: 048
     Dates: start: 20140318, end: 20141113
  10. FERROUS SULFATE. [Concomitant]
     Active Substance: FERROUS SULFATE
     Dosage: 325 MG, QD
     Route: 048
     Dates: start: 20140918, end: 20150211
  11. PRENATAL 19 [Concomitant]
     Active Substance: .ALPHA.-TOCOPHEROL ACETATE, DL-\.BETA.-CAROTENE\ASCORBIC ACID\CALCIUM CARBONATE\CALCIUM PANTOTHENATE\CHOLECALCIFEROL\CYANOCOBALAMIN\DOCUSATE SODIUM\FERROUS FUMARATE\FOLIC ACID\NIACINAMIDE\PYRIDOXINE HYDROCHLORIDE\RIBOFLAVIN\THIAMINE MONONITRATE\ZINC OXIDE
     Dosage: 1 DF, QD
     Route: 048
     Dates: start: 20140918, end: 20150211
  12. PRENATAL VITAMINS [VIT C,VIT H,MIN NOS,VIT PP,RETINOL,VIT E,VIT B [Concomitant]
     Dosage: UNK
     Route: 048
     Dates: end: 20150211

REACTIONS (15)
  - Weight increased [Not Recovered/Not Resolved]
  - Abdominal pain lower [Not Recovered/Not Resolved]
  - Feeling abnormal [Not Recovered/Not Resolved]
  - Back pain [Not Recovered/Not Resolved]
  - Food craving [Not Recovered/Not Resolved]
  - Dysmenorrhoea [None]
  - Blood pressure decreased [None]
  - Genital haemorrhage [None]
  - Anaemia [None]
  - Abdominal distension [Not Recovered/Not Resolved]
  - Menstruation delayed [Not Recovered/Not Resolved]
  - Menorrhagia [None]
  - Menstruation irregular [None]
  - Intentional product use issue [None]
  - Alopecia [Not Recovered/Not Resolved]

NARRATIVE: CASE EVENT DATE: 2015
